FAERS Safety Report 19417666 (Version 2)
Quarter: 2021Q2

REPORT INFORMATION
  Report Type: Report from Study
  Country: US (occurrence: US)
  Receive Date: 20210615
  Receipt Date: 20210623
  Transmission Date: 20210717
  Serious: Yes (Hospitalization, Other)
  Sender: FDA-Public Use
  Company Number: US-EMD SERONO-9192781

PATIENT
  Age: 65 Year
  Sex: Male

DRUGS (2)
  1. REBIF [Suspect]
     Active Substance: INTERFERON BETA-1A
     Indication: MULTIPLE SCLEROSIS
     Dosage: PREVIOUSLY: REBIF PREFILLED SYRINGE
     Route: 058
     Dates: start: 20181101
  2. REBIF [Suspect]
     Active Substance: INTERFERON BETA-1A
     Route: 058

REACTIONS (4)
  - Gait inability [Unknown]
  - Seizure [Unknown]
  - Brain operation [Unknown]
  - Radiation neuropathy [Unknown]

NARRATIVE: CASE EVENT DATE: 2020
